FAERS Safety Report 5464172-2 (Version None)
Quarter: 2007Q3

REPORT INFORMATION
  Report Type: 
  Country: None (occurrence: None)
  Receive Date: 20070921
  Receipt Date: 20070912
  Transmission Date: 20080115
  Serious: Yes (Death)
  Sender: FDA-Public Use
  Company Number: AU-GENENTECH-247690

PATIENT
  Sex: Female

DRUGS (2)
  1. RITUXAN [Suspect]
     Indication: B-CELL LYMPHOMA
  2. CHEMOTHERAPY (UNK INGREDIENTS) [Concomitant]
     Indication: B-CELL LYMPHOMA

REACTIONS (1)
  - CARDIAC DISORDER [None]
